FAERS Safety Report 25774553 (Version 1)
Quarter: 2025Q3

REPORT INFORMATION
  Report Type: Spontaneous
  Country: CN (occurrence: CN)
  Receive Date: 20250908
  Receipt Date: 20250908
  Transmission Date: 20251020
  Serious: Yes (Hospitalization, Other)
  Sender: AMGEN
  Company Number: CN-AMGEN-CHNSP2025174746

PATIENT
  Age: 71 Year
  Sex: Male

DRUGS (8)
  1. XGEVA [Suspect]
     Active Substance: DENOSUMAB
     Indication: Small cell lung cancer
     Dosage: 120 MILLIGRAM, QMO, ONCE EVERY FOUR WEEKS
     Route: 058
     Dates: start: 202310, end: 202402
  2. ETOPOSIDE [Concomitant]
     Active Substance: ETOPOSIDE
     Indication: Small cell lung cancer
     Dates: start: 20230912, end: 2023
  3. ETOPOSIDE [Concomitant]
     Active Substance: ETOPOSIDE
     Dates: start: 20231019, end: 20231021
  4. ETOPOSIDE [Concomitant]
     Active Substance: ETOPOSIDE
     Dates: start: 20231019, end: 20231207
  5. CARBOPLATIN [Concomitant]
     Active Substance: CARBOPLATIN
     Indication: Small cell lung cancer
     Dates: start: 20230912, end: 2023
  6. CARBOPLATIN [Concomitant]
     Active Substance: CARBOPLATIN
     Dates: start: 20231019, end: 20231021
  7. CARBOPLATIN [Concomitant]
     Active Substance: CARBOPLATIN
     Dates: start: 20231113, end: 20231207
  8. DURVALUMAB [Concomitant]
     Active Substance: DURVALUMAB
     Indication: Small cell lung cancer
     Dates: start: 20231113

REACTIONS (5)
  - Small cell lung cancer [Unknown]
  - Pleural effusion [Unknown]
  - Lung adenocarcinoma [Unknown]
  - Pneumonia [Unknown]
  - Bronchiectasis [Unknown]

NARRATIVE: CASE EVENT DATE: 20240101
